FAERS Safety Report 23067625 (Version 1)
Quarter: 2023Q4

REPORT INFORMATION
  Report Type: Spontaneous
  Country: CN (occurrence: CN)
  Receive Date: 20231016
  Receipt Date: 20231016
  Transmission Date: 20240110
  Serious: Yes (Other)
  Sender: FDA-Public Use
  Company Number: CN-BRISTOL-MYERS SQUIBB COMPANY-2023-146283

PATIENT
  Age: 68 Year
  Sex: Male
  Weight: 46 kg

DRUGS (2)
  1. OPDIVO [Suspect]
     Active Substance: NIVOLUMAB
     Indication: Lung neoplasm malignant
     Dosage: DOSE : 360MG [TAB1];     FREQ : ONCE A DAY??DRUG USE-TIMES: 1?DRUG USE-DAYS: 1
     Route: 041
     Dates: start: 20231009, end: 20231009
  2. SODIUM CHLORIDE [Concomitant]
     Active Substance: SODIUM CHLORIDE
     Indication: Lung neoplasm malignant
     Dosage: 0.9% SODIUM CHLORIDE INJECTION 250ML
     Dates: start: 20231009, end: 20231009

REACTIONS (3)
  - Chills [Recovering/Resolving]
  - Pyrexia [Recovering/Resolving]
  - Off label use [Unknown]

NARRATIVE: CASE EVENT DATE: 20231009
